FAERS Safety Report 25050125 (Version 1)
Quarter: 2025Q1

REPORT INFORMATION
  Report Type: Spontaneous
  Country: US (occurrence: None)
  Receive Date: 20250306
  Receipt Date: 20250306
  Transmission Date: 20250408
  Serious: Yes (Hospitalization)
  Sender: FDA-CTU
  Company Number: None

PATIENT
  Age: 87 Year
  Sex: Male

DRUGS (2)
  1. OCTREOTIDE [Suspect]
     Active Substance: OCTREOTIDE
     Route: 030
     Dates: start: 20250214, end: 20250214
  2. aspirin 325mg PO daily [Concomitant]

REACTIONS (6)
  - Pain in extremity [None]
  - Muscular weakness [None]
  - Weight bearing difficulty [None]
  - Haematoma muscle [None]
  - Anaemia [None]
  - Hypoaesthesia [None]

NARRATIVE: CASE EVENT DATE: 20250214
